FAERS Safety Report 10219511 (Version 1)
Quarter: 2014Q1

REPORT INFORMATION
  Report Type: Spontaneous
  Country: US (occurrence: None)
  Receive Date: 20140306
  Receipt Date: 20140306
  Transmission Date: 20141002
  Serious: Yes (Other)
  Sender: FDA-Public Use
  Company Number: 163-21880-13100644

PATIENT
  Age: 73 Year
  Sex: Male
  Weight: 79 kg

DRUGS (15)
  1. REVLIMID (LENALIDOMIDE) (25 MILLIGRAM, CAPSULES) [Suspect]
     Indication: PLASMA CELL MYELOMA
     Route: 048
     Dates: start: 20130805
  2. ZOMETA (ZOLEDRONIC ACID) [Concomitant]
  3. MEPRON (ATOVAQUONE) [Concomitant]
  4. OMEPRAZOLE [Concomitant]
  5. WARFARIN [Concomitant]
  6. LOVENOX (HEPARIN-FRACTION, SODIUM SALT) [Concomitant]
  7. DEXAMETHASONE [Concomitant]
  8. VITAMIN D3 (COLECALCIFEROL) [Concomitant]
  9. OXYCONTIN (OXYCODONE HYDROCHLORIDE) [Concomitant]
  10. LOPRESSOR (METOPROLOL TARTRATE) [Concomitant]
  11. ASPIRIN (ACETYLSALICYLIC ACID) [Concomitant]
  12. SENOKOT (SENNA FRUIT) [Concomitant]
  13. PAMIDRONATE (PAMIDRONATE DISODIUM) [Concomitant]
  14. COLACE (DOCUSATE SODIUM) [Concomitant]
  15. ZYRTEC (CETIRIZINE HYDROCHLORIDE) [Concomitant]

REACTIONS (1)
  - Deep vein thrombosis [None]
